FAERS Safety Report 18620418 (Version 3)
Quarter: 2021Q1

REPORT INFORMATION
  Report Type: Report from Study
  Country: None (occurrence: CH)
  Receive Date: 20201216
  Receipt Date: 20210217
  Transmission Date: 20210419
  Serious: Yes (Hospitalization)
  Sender: FDA-Public Use
  Company Number: CH-ABBVIE-20K-151-3685344-00

PATIENT
  Age: 77 Year
  Sex: Male

DRUGS (2)
  1. DUODOPA [Suspect]
     Active Substance: CARBIDOPA\LEVODOPA
     Dosage: MD: 9 ML, CRD: 3.6 ML/H, CRN: 1.5 ML/H, ED: 1.5 ML. 1 CASSETTE PER DAY?24 H THERAPY.
     Route: 050
     Dates: start: 20201007
  2. DUODOPA [Suspect]
     Active Substance: CARBIDOPA\LEVODOPA
     Indication: PARKINSON^S DISEASE
     Dosage: 1 CASSETTE PER DAY
     Route: 050
     Dates: start: 201803

REACTIONS (3)
  - Incorrect route of product administration [Not Recovered/Not Resolved]
  - Device dislocation [Recovered/Resolved]
  - COVID-19 [Recovering/Resolving]

NARRATIVE: CASE EVENT DATE: 2020
